FAERS Safety Report 24297551 (Version 1)
Quarter: 2024Q3

REPORT INFORMATION
  Report Type: Spontaneous
  Country: CA (occurrence: CA)
  Receive Date: 20240909
  Receipt Date: 20240909
  Transmission Date: 20241016
  Serious: Yes (Other)
  Sender: TEVA
  Company Number: CA-TEVA-VS-3239188

PATIENT
  Age: 3 Year
  Sex: Female

DRUGS (5)
  1. ETOPOSIDE [Suspect]
     Active Substance: ETOPOSIDE
     Indication: Acute myeloid leukaemia
     Route: 065
  2. DAUNORUBICIN HYDROCHLORIDE [Suspect]
     Active Substance: DAUNORUBICIN HYDROCHLORIDE
     Indication: Acute myeloid leukaemia
     Dosage: POWDER FOR SOLUTION INTRAVENOUS
     Route: 065
  3. HYDROCORTISONE [Suspect]
     Active Substance: HYDROCORTISONE\HYDROCORTISONE ACETATE
     Indication: Acute myeloid leukaemia
     Route: 065
  4. THIOGUANINE [Suspect]
     Active Substance: THIOGUANINE
     Indication: Acute myeloid leukaemia
     Route: 065
  5. CYTARABINE [Concomitant]
     Active Substance: CYTARABINE
     Indication: Product used for unknown indication

REACTIONS (4)
  - Enterococcal infection [Recovered/Resolved]
  - Klebsiella infection [Recovered/Resolved]
  - Necrotising fasciitis [Recovered/Resolved]
  - Pseudomonas infection [Recovered/Resolved]
